FAERS Safety Report 8747759 (Version 4)
Quarter: 2012Q4

REPORT INFORMATION
  Report Type: 
  Country: GB (occurrence: GB)
  Receive Date: 20120827
  Receipt Date: 20121003
  Transmission Date: 20130627
  Serious: Yes (Death)
  Sender: FDA-Public Use
  Company Number: GB-PFIZER INC-2012204426

PATIENT
  Age: 80 Year
  Sex: Female
  Weight: 130 kg

DRUGS (10)
  1. CLINDAMYCIN HCL [Suspect]
     Indication: CELLULITIS
     Dosage: 450 mg, 4x/day
     Route: 048
     Dates: start: 20111017, end: 20111025
  2. WARFARIN [Interacting]
     Dosage: 1 mg, UNK
     Dates: start: 20110721
  3. PHENOXYMETHYLPENICILLIN [Concomitant]
     Dosage: 250 mg, 2x/day
  4. DOXAZOSIN [Concomitant]
     Dosage: 1 mg, 1x/day
  5. CAPTOPRIL [Concomitant]
     Dosage: 50 mg, 3x/day
  6. ATENOLOL [Concomitant]
     Dosage: 50 mg, 1x/day
  7. BENDROFLUMETHIAZIDE [Concomitant]
     Dosage: 2.5 mg, 1x/day
  8. ADALAT LA [Concomitant]
     Dosage: 1 DF, 1x/day
  9. PARACETAMOL [Concomitant]
     Indication: PAIN
     Dosage: 500 mg, as needed
  10. CODEINE [Concomitant]
     Indication: PAIN
     Dosage: 15 mg, as needed

REACTIONS (3)
  - Drug interaction [Fatal]
  - Retroperitoneal haemorrhage [Fatal]
  - Coagulopathy [Fatal]
